FAERS Safety Report 5906738-9 (Version None)
Quarter: 2008Q4

REPORT INFORMATION
  Report Type: 
  Country: None (occurrence: None)
  Receive Date: 20081002
  Receipt Date: 20080925
  Transmission Date: 20090506
  Serious: Yes (Hospitalization, Disabling, Other)
  Sender: FDA-Public Use
  Company Number: US-MERCK-0805USA00921

PATIENT
  Age: 40 Year
  Sex: Female
  Weight: 93 kg

DRUGS (4)
  1. FOSAMAX [Suspect]
     Indication: OSTEOPENIA
     Route: 048
     Dates: start: 20010101, end: 20031001
  2. FOSAMAX [Suspect]
     Route: 048
     Dates: start: 20040101
  3. FOSAMAX [Suspect]
     Indication: OSTEOPOROSIS
     Route: 048
     Dates: start: 20010101, end: 20031001
  4. FOSAMAX [Suspect]
     Route: 048
     Dates: start: 20040101

REACTIONS (37)
  - ABSCESS [None]
  - ANAEMIA [None]
  - ANXIETY [None]
  - ASTHMA [None]
  - BONE DISORDER [None]
  - BRUXISM [None]
  - CHEILITIS [None]
  - CHEST PAIN [None]
  - COMA [None]
  - CROHN'S DISEASE [None]
  - DRUG HYPERSENSITIVITY [None]
  - EDENTULOUS [None]
  - ELECTROCARDIOGRAM T WAVE ABNORMAL [None]
  - FATIGUE [None]
  - FIBROSIS [None]
  - GASTROINTESTINAL DISORDER [None]
  - HEPATITIS A [None]
  - HYPOTENSION [None]
  - MAJOR DEPRESSION [None]
  - MENTAL STATUS CHANGES [None]
  - MIGRAINE [None]
  - OCCIPITAL NEURALGIA [None]
  - OSTEOARTHRITIS [None]
  - OSTEOMYELITIS [None]
  - OSTEONECROSIS [None]
  - OVERDOSE [None]
  - PNEUMONIA [None]
  - RENAL FAILURE ACUTE [None]
  - RESPIRATORY ACIDOSIS [None]
  - RESPIRATORY DEPRESSION [None]
  - RHABDOMYOLYSIS [None]
  - SEXUALLY TRANSMITTED DISEASE [None]
  - SYSTEMIC LUPUS ERYTHEMATOSUS [None]
  - TOOTH ABSCESS [None]
  - URINARY TRACT INFECTION [None]
  - UTERINE DISORDER [None]
  - WEIGHT DECREASED [None]
